FAERS Safety Report 22969634 (Version 2)
Quarter: 2023Q4

REPORT INFORMATION
  Report Type: Spontaneous
  Country: US (occurrence: US)
  Receive Date: 20230922
  Receipt Date: 20231220
  Transmission Date: 20240110
  Serious: No
  Sender: FDA-Public Use
  Company Number: US-BRISTOL-MYERS SQUIBB COMPANY-2023-134372

PATIENT
  Age: 46 Year
  Sex: Female

DRUGS (1)
  1. OPDIVO [Suspect]
     Active Substance: NIVOLUMAB
     Indication: Colon cancer
     Dosage: DOSE : 480  MG;     FREQ : 480 MG EVERY 4 WEEKS
     Dates: end: 20230602

REACTIONS (2)
  - Nausea [Unknown]
  - Vomiting [Unknown]
